FAERS Safety Report 6422750-8 (Version None)
Quarter: 2009Q4

REPORT INFORMATION
  Report Type: 
  Country: None (occurrence: None)
  Receive Date: 20091102
  Receipt Date: 20091026
  Transmission Date: 20100525
  Serious: Yes (Other)
  Sender: FDA-Public Use
  Company Number: FI-WYE-G04733109

PATIENT
  Age: 85 Year
  Sex: Female

DRUGS (10)
  1. RELISTOR [Suspect]
     Indication: CONSTIPATION
     Route: 058
     Dates: start: 20090922, end: 20091026
  2. DURAGESIC-100 [Concomitant]
     Indication: PAIN
     Route: 062
  3. FURESIS [Concomitant]
     Route: 048
  4. ZOFRAN [Concomitant]
     Route: 048
  5. GLYCERYL TRINITRATE [Concomitant]
     Route: 062
  6. OPAMOX [Concomitant]
     Route: 048
  7. OXYCONTIN [Concomitant]
     Indication: PAIN
  8. PLAVIX [Concomitant]
     Route: 048
  9. LANTUS [Concomitant]
     Indication: TYPE 1 DIABETES MELLITUS
  10. IMOVANE [Concomitant]
     Route: 048

REACTIONS (1)
  - ACUTE MYOCARDIAL INFARCTION [None]
